FAERS Safety Report 7001369-4 (Version None)
Quarter: 2010Q3

REPORT INFORMATION
  Report Type: 
  Country: None (occurrence: None)
  Receive Date: 20100920
  Receipt Date: 20100525
  Transmission Date: 20110219
  Serious: No
  Sender: FDA-Public Use
  Company Number: US-ASTRAZENECA-2010SE05921

PATIENT
  Age: 22608 Day
  Sex: Female
  Weight: 56.2 kg

DRUGS (15)
  1. SEROQUEL XR [Suspect]
     Indication: SLEEP DISORDER
     Route: 048
  2. SEROQUEL XR [Suspect]
     Indication: BORDERLINE PERSONALITY DISORDER
     Route: 048
  3. SEROQUEL XR [Suspect]
     Indication: ATTENTION DEFICIT/HYPERACTIVITY DISORDER
     Route: 048
  4. SEROQUEL XR [Suspect]
     Indication: PAIN
     Route: 048
  5. SEROQUEL XR [Suspect]
     Indication: DEPRESSION
     Route: 048
  6. SEROQUEL XR [Suspect]
     Route: 048
     Dates: start: 20100101
  7. SEROQUEL XR [Suspect]
     Route: 048
     Dates: start: 20100101
  8. SEROQUEL XR [Suspect]
     Route: 048
     Dates: start: 20100101
  9. SEROQUEL XR [Suspect]
     Route: 048
     Dates: start: 20100101
  10. SEROQUEL XR [Suspect]
     Route: 048
     Dates: start: 20100101
  11. SEROQUEL XR [Suspect]
     Route: 048
  12. SEROQUEL XR [Suspect]
     Route: 048
  13. SEROQUEL XR [Suspect]
     Route: 048
  14. SEROQUEL XR [Suspect]
     Route: 048
  15. SEROQUEL XR [Suspect]
     Route: 048

REACTIONS (11)
  - DEPRESSION [None]
  - DIARRHOEA [None]
  - DRUG DOSE OMISSION [None]
  - GASTROENTERITIS VIRAL [None]
  - INCORRECT DOSE ADMINISTERED [None]
  - INSOMNIA [None]
  - INTENTIONAL DRUG MISUSE [None]
  - MIDDLE INSOMNIA [None]
  - NERVOUSNESS [None]
  - TACHYPHRENIA [None]
  - WEIGHT INCREASED [None]
